FAERS Safety Report 10069239 (Version 2)
Quarter: 2014Q2

REPORT INFORMATION
  Report Type: Spontaneous
  Country: US (occurrence: US)
  Receive Date: 20140409
  Receipt Date: 20140409
  Transmission Date: 20141212
  Serious: No
  Sender: FDA-Public Use
  Company Number: US-ASTELLAS-2013US004694

PATIENT
  Age: 58 Year
  Sex: Female
  Weight: 57 kg

DRUGS (2)
  1. PROTOPIC [Suspect]
     Indication: RASH
     Dosage: 0.1 %, BID
     Route: 061
     Dates: start: 201304, end: 201304
  2. ESTROGEN [Concomitant]
     Indication: HORMONE THERAPY
     Dosage: 0.5 UNK, UID/QD
     Route: 048

REACTIONS (4)
  - Off label use [Unknown]
  - Skin burning sensation [Recovered/Resolved]
  - Pruritus [Recovered/Resolved]
  - Application site burn [Recovered/Resolved]
